FAERS Safety Report 21556075 (Version 1)
Quarter: 2022Q4

REPORT INFORMATION
  Report Type: Spontaneous
  Country: IT (occurrence: IT)
  Receive Date: 20221104
  Receipt Date: 20221104
  Transmission Date: 20230113
  Serious: Yes (Other)
  Sender: FDA-Public Use
  Company Number: None

PATIENT
  Age: 30 Year
  Sex: Female
  Weight: 60 kg

DRUGS (3)
  1. FELDENE [Suspect]
     Active Substance: PIROXICAM
     Dosage: UNK
     Route: 030
     Dates: start: 20210314, end: 20210316
  2. BETAMETHASONE SODIUM PHOSPHATE [Concomitant]
     Active Substance: BETAMETHASONE SODIUM PHOSPHATE
     Dosage: UNK
     Route: 048
     Dates: start: 20210310
  3. THIOCOLCHICOSIDE [Concomitant]
     Active Substance: THIOCOLCHICOSIDE
     Dosage: UNK
     Route: 048
     Dates: start: 20210310

REACTIONS (3)
  - Hypersensitivity [Recovering/Resolving]
  - Pharyngeal oedema [Recovering/Resolving]
  - Paraesthesia [Recovering/Resolving]

NARRATIVE: CASE EVENT DATE: 20210315
